FAERS Safety Report 19176745 (Version 1)
Quarter: 2021Q2

REPORT INFORMATION
  Report Type: Spontaneous
  Country: ES (occurrence: ES)
  Receive Date: 20210424
  Receipt Date: 20210424
  Transmission Date: 20210717
  Serious: Yes (Other)
  Sender: FDA-Public Use
  Company Number: ES-TAKEDA-2021TUS024086

PATIENT

DRUGS (2)
  1. VON WILLEBRAND FACTOR [Suspect]
     Active Substance: VON WILLEBRAND FACTOR HUMAN
     Indication: ACQUIRED VON WILLEBRAND^S DISEASE
     Route: 065
  2. DESMOPRESSIN [Suspect]
     Active Substance: DESMOPRESSIN
     Indication: ACQUIRED VON WILLEBRAND^S DISEASE
     Route: 065

REACTIONS (2)
  - No adverse event [Unknown]
  - Therapy non-responder [Unknown]
